FAERS Safety Report 22626757 (Version 1)
Quarter: 2023Q2

REPORT INFORMATION
  Report Type: Spontaneous
  Country: US (occurrence: US)
  Receive Date: 20230622
  Receipt Date: 20230622
  Transmission Date: 20230722
  Serious: Yes (Death)
  Sender: FDA-Public Use
  Company Number: US-STRIDES ARCOLAB LIMITED-2023SP009702

PATIENT
  Age: 53 Year
  Sex: Female

DRUGS (21)
  1. PREDNISOLONE [Suspect]
     Active Substance: PREDNISOLONE
     Indication: Malignant melanoma
     Dosage: UNK
     Route: 065
  2. PREDNISOLONE [Suspect]
     Active Substance: PREDNISOLONE
     Indication: Malignant melanoma stage II
  3. PREDNISOLONE [Suspect]
     Active Substance: PREDNISOLONE
     Indication: Metastatic malignant melanoma
  4. INTERFERON [Suspect]
     Active Substance: INTERFERON
     Indication: Malignant melanoma
     Dosage: UNK
     Route: 065
  5. INTERFERON [Suspect]
     Active Substance: INTERFERON
     Indication: Malignant melanoma stage II
  6. INTERFERON [Suspect]
     Active Substance: INTERFERON
     Indication: Metastatic malignant melanoma
  7. IPILIMUMAB [Suspect]
     Active Substance: IPILIMUMAB
     Indication: Malignant melanoma
     Dosage: UNK
     Route: 065
  8. IPILIMUMAB [Suspect]
     Active Substance: IPILIMUMAB
     Indication: Malignant melanoma stage II
  9. IPILIMUMAB [Suspect]
     Active Substance: IPILIMUMAB
     Indication: Metastatic malignant melanoma
  10. METHYLPREDNISOLONE [Suspect]
     Active Substance: METHYLPREDNISOLONE
     Indication: Malignant melanoma
     Dosage: UNK
     Route: 065
  11. METHYLPREDNISOLONE [Suspect]
     Active Substance: METHYLPREDNISOLONE
     Indication: Malignant melanoma stage II
  12. METHYLPREDNISOLONE [Suspect]
     Active Substance: METHYLPREDNISOLONE
     Indication: Metastatic malignant melanoma
  13. NIVOLUMAB [Suspect]
     Active Substance: NIVOLUMAB
     Indication: Malignant melanoma
     Dosage: UNK
     Route: 065
  14. NIVOLUMAB [Suspect]
     Active Substance: NIVOLUMAB
     Indication: Malignant melanoma stage II
  15. NIVOLUMAB [Suspect]
     Active Substance: NIVOLUMAB
     Indication: Metastatic malignant melanoma
  16. PLOZALIZUMAB [Suspect]
     Active Substance: PLOZALIZUMAB
     Indication: Malignant melanoma
     Dosage: UNK
     Route: 065
  17. PLOZALIZUMAB [Suspect]
     Active Substance: PLOZALIZUMAB
     Indication: Malignant melanoma stage II
  18. PLOZALIZUMAB [Suspect]
     Active Substance: PLOZALIZUMAB
     Indication: Metastatic malignant melanoma
  19. PEMBROLIZUMAB [Suspect]
     Active Substance: PEMBROLIZUMAB
     Indication: Malignant melanoma
     Dosage: UNK
     Route: 065
  20. PEMBROLIZUMAB [Suspect]
     Active Substance: PEMBROLIZUMAB
     Indication: Malignant melanoma stage II
  21. PEMBROLIZUMAB [Suspect]
     Active Substance: PEMBROLIZUMAB
     Indication: Metastatic malignant melanoma

REACTIONS (2)
  - Disease progression [Fatal]
  - Drug ineffective [Fatal]
